FAERS Safety Report 12863839 (Version 5)
Quarter: 2020Q1

REPORT INFORMATION
  Report Type: Report from Study
  Country: JP (occurrence: JP)
  Receive Date: 20161019
  Receipt Date: 20200320
  Transmission Date: 20200409
  Serious: Yes (Hospitalization, Other)
  Sender: FDA-Public Use
  Company Number: JP-ACTELION-A-US2016-144032

PATIENT
  Age: 20 Year
  Sex: Female
  Weight: 48.1 kg

DRUGS (14)
  1. ASACOL [Suspect]
     Active Substance: MESALAMINE
     Indication: PRODUCT USED FOR UNKNOWN INDICATION
     Dosage: 1200 MG, QD
     Route: 065
     Dates: start: 20161116, end: 20170110
  2. PREDONINE [Concomitant]
     Active Substance: PREDNISOLONE
     Dosage: UNK
     Dates: start: 20161202
  3. VENTAVIS [Suspect]
     Active Substance: ILOPROST
     Dosage: 5 MCG , 6ID
     Route: 055
     Dates: start: 20160704, end: 20160726
  4. ADALIMUMAB [Suspect]
     Active Substance: ADALIMUMAB
     Indication: PRODUCT USED FOR UNKNOWN INDICATION
     Dosage: 40-160 MG
     Route: 042
     Dates: start: 20170303
  5. ADCIRCA [Concomitant]
     Active Substance: TADALAFIL
     Dosage: UNK
     Dates: start: 20160426
  6. VENTAVIS [Suspect]
     Active Substance: ILOPROST
     Dosage: 5 MCG, 9ID
     Route: 055
     Dates: start: 20160727
  7. VENTAVIS [Suspect]
     Active Substance: ILOPROST
     Dosage: 2.5 MCG
     Route: 055
     Dates: start: 20170131
  8. OPSUMIT [Concomitant]
     Active Substance: MACITENTAN
     Dosage: UNK
     Route: 048
     Dates: start: 20160415
  9. TAKEPRON [Concomitant]
     Active Substance: LANSOPRAZOLE
     Indication: PROPHYLAXIS
     Dosage: UNK
     Dates: end: 20161019
  10. VENTAVIS [Suspect]
     Active Substance: ILOPROST
     Indication: PULMONARY ARTERIAL HYPERTENSION
     Dosage: 2.5 MCG, 6ID
     Route: 055
     Dates: start: 20160609, end: 20160703
  11. HERBAL NOS [Concomitant]
     Active Substance: HERBALS
     Dosage: UNK
     Dates: start: 201404, end: 20160922
  12. VENTAVIS [Suspect]
     Active Substance: ILOPROST
     Dosage: 5 MCG, 6ID
     Route: 055
     Dates: start: 20161222
  13. DIART [Suspect]
     Active Substance: AZOSEMIDE
     Indication: PRODUCT USED FOR UNKNOWN INDICATION
     Dosage: 30 MG, QD
     Route: 065
     Dates: end: 20170131
  14. PENTASA [Suspect]
     Active Substance: MESALAMINE
     Indication: COLITIS ULCERATIVE
     Dosage: UNK
     Route: 065
     Dates: start: 20160923, end: 20161018

REACTIONS (15)
  - Dysmenorrhoea [Not Recovered/Not Resolved]
  - Tachycardia [Recovered/Resolved]
  - Dizziness [Recovered/Resolved]
  - Headache [Recovered/Resolved]
  - Back pain [Recovered/Resolved]
  - Hypoaesthesia [Recovered/Resolved]
  - Hypokalaemia [Recovered/Resolved]
  - Pancreatitis acute [Recovered/Resolved]
  - Haematochezia [Recovered/Resolved]
  - Iron deficiency anaemia [Recovered/Resolved]
  - Nausea [Recovered/Resolved]
  - Abdominal pain upper [Recovered/Resolved]
  - Palpitations [Recovered/Resolved]
  - Flushing [Recovered/Resolved]
  - Pancreatitis [Recovered/Resolved]

NARRATIVE: CASE EVENT DATE: 20160609
